FAERS Safety Report 9792514 (Version 9)
Quarter: 2014Q3

REPORT INFORMATION
  Report Type: Spontaneous
  Country: BR (occurrence: BR)
  Receive Date: 20140102
  Receipt Date: 20140702
  Transmission Date: 20150326
  Serious: Yes (Death, Hospitalization, Other)
  Sender: FDA-Public Use
  Company Number: BR-PFIZER INC-2013360667

PATIENT
  Age: 51 Year
  Sex: Male
  Weight: 90 kg

DRUGS (6)
  1. SUTENT [Suspect]
     Active Substance: SUNITINIB MALATE
     Indication: GASTROINTESTINAL STROMAL CANCER
     Dosage: 1 CAPSULE OF STRENGHT 50 MG, ONCE A DAY, CYCLE 4 PER 2
     Route: 048
     Dates: start: 20131214, end: 20140218
  2. PLASIL [Concomitant]
     Active Substance: METOCLOPRAMIDE HYDROCHLORIDE
  3. LOSARTAN POTASSIUM. [Concomitant]
     Active Substance: LOSARTAN POTASSIUM
     Dosage: 2 OR 3 TABLETS (50MG EACH), DAILY
  4. CATAFLAM [Concomitant]
     Active Substance: DICLOFENAC POTASSIUM
  5. AMPHOTERICIN B/TETRACYCLINE HYDROCHLORIDE [Concomitant]
  6. SUTENT [Suspect]
     Active Substance: SUNITINIB MALATE
     Dosage: 50 MG, CYCLIC (CYCLE 4X2)

REACTIONS (41)
  - Death [Fatal]
  - Weight decreased [Not Recovered/Not Resolved]
  - Anaemia [Unknown]
  - Vomiting [Unknown]
  - Asthenia [Unknown]
  - Feeding disorder [Not Recovered/Not Resolved]
  - Abdominal pain [Recovering/Resolving]
  - Muscle spasms [Unknown]
  - Wound [Not Recovered/Not Resolved]
  - Pain in extremity [Unknown]
  - Secretion discharge [Not Recovered/Not Resolved]
  - Nausea [Unknown]
  - Fatigue [Unknown]
  - Blood uric acid increased [Unknown]
  - Faeces hard [Not Recovered/Not Resolved]
  - Oropharyngeal pain [Unknown]
  - Oral discharge [Not Recovered/Not Resolved]
  - Epistaxis [Unknown]
  - Loss of consciousness [Recovered/Resolved]
  - Retching [Unknown]
  - Dysstasia [Not Recovered/Not Resolved]
  - Spinal disorder [Unknown]
  - Loss of libido [Unknown]
  - Lung disorder [Not Recovered/Not Resolved]
  - Peripheral swelling [Unknown]
  - Syncope [Unknown]
  - Aphthous stomatitis [Unknown]
  - Eructation [Unknown]
  - Skin wound [Unknown]
  - Somnolence [Unknown]
  - Hypophagia [Not Recovered/Not Resolved]
  - Diarrhoea [Unknown]
  - Pain [Unknown]
  - Blood pressure fluctuation [Unknown]
  - Gait disturbance [Unknown]
  - Paralysis [Not Recovered/Not Resolved]
  - Pain in extremity [Not Recovered/Not Resolved]
  - Cold sweat [Unknown]
  - Blood pressure increased [Unknown]
  - Erectile dysfunction [Unknown]
  - Dizziness [Unknown]

NARRATIVE: CASE EVENT DATE: 201312
